FAERS Safety Report 22943560 (Version 3)
Quarter: 2025Q4

REPORT INFORMATION
  Report Type: Spontaneous
  Country: EU (occurrence: EU)
  Receive Date: 20230914
  Receipt Date: 20251110
  Transmission Date: 20260118
  Serious: No
  Sender: ORGANON
  Company Number: EU-ORGANON-O2309ROM001625

PATIENT
  Age: 55 Year
  Sex: Female

DRUGS (2)
  1. ALENDRONATE SODIUM [Suspect]
     Active Substance: ALENDRONATE SODIUM
     Indication: Osteoporosis postmenopausal
     Dosage: UNK
  2. RISEDRONATE SODIUM [Suspect]
     Active Substance: RISEDRONATE SODIUM
     Indication: Osteoporosis postmenopausal
     Dosage: UNK

REACTIONS (1)
  - Drug ineffective [Unknown]
